FAERS Safety Report 10759787 (Version 8)
Quarter: 2017Q1

REPORT INFORMATION
  Report Type: Spontaneous
  Country: DE (occurrence: DE)
  Receive Date: 20150203
  Receipt Date: 20170227
  Transmission Date: 20170428
  Serious: Yes (Life-Threatening, Hospitalization, Other)
  Sender: FDA-Public Use
  Company Number: DE-TAKEDA-2015TUS001143

PATIENT
  Age: 29 Year
  Sex: Male
  Weight: 75 kg

DRUGS (3)
  1. ENTYVIO [Suspect]
     Active Substance: VEDOLIZUMAB
     Indication: CROHN^S DISEASE
     Dosage: 300 MG, UNK
     Route: 042
     Dates: start: 20140917, end: 20141127
  2. PREDNISOLONE. [Concomitant]
     Active Substance: PREDNISOLONE
     Indication: CHOLANGITIS SCLEROSING
     Dosage: 10 MG, UNK
     Route: 048
     Dates: start: 20141112
  3. URSODEOXYCHOLIC ACID [Concomitant]
     Active Substance: URSODIOL
     Indication: CHOLANGITIS SCLEROSING
     Dosage: 1000 MG, UNK
     Route: 048
     Dates: start: 200701

REACTIONS (3)
  - Pneumonia [Recovered/Resolved]
  - Acute respiratory distress syndrome [Recovered/Resolved]
  - Pulmonary sepsis [Recovered/Resolved]

NARRATIVE: CASE EVENT DATE: 20141208
